FAERS Safety Report 18130142 (Version 2)
Quarter: 2020Q3

REPORT INFORMATION
  Report Type: Report from Study
  Country: US (occurrence: US)
  Receive Date: 20200810
  Receipt Date: 20200907
  Transmission Date: 20201103
  Serious: Yes (Hospitalization, Other)
  Sender: FDA-Public Use
  Company Number: US-BIOGEN-2020BI00906523

PATIENT
  Age: 34 Year
  Sex: Female

DRUGS (1)
  1. TECFIDERA [Suspect]
     Active Substance: DIMETHYL FUMARATE
     Indication: MULTIPLE SCLEROSIS
     Route: 065
     Dates: start: 20130805, end: 20200622

REACTIONS (8)
  - Lymphadenopathy [Not Recovered/Not Resolved]
  - Wound [Not Recovered/Not Resolved]
  - Sarcoidosis [Unknown]
  - Multiple sclerosis relapse [Unknown]
  - Lymphoma [Unknown]
  - Decreased immune responsiveness [Unknown]
  - Abscess [Not Recovered/Not Resolved]
  - Sepsis [Not Recovered/Not Resolved]

NARRATIVE: CASE EVENT DATE: 202005
